FAERS Safety Report 7408942-X (Version None)
Quarter: 2011Q2

REPORT INFORMATION
  Report Type: 
  Country: None (occurrence: None)
  Receive Date: 20110412
  Receipt Date: 20110411
  Transmission Date: 20111010
  Serious: Yes (Other)
  Sender: FDA-Public Use
  Company Number: US-PFIZER INC-2011078724

PATIENT
  Sex: Female
  Weight: 70.295 kg

DRUGS (4)
  1. CELEBREX [Suspect]
  2. CELEBREX [Suspect]
     Indication: INTERVERTEBRAL DISC PROTRUSION
  3. CELEBREX [Suspect]
     Indication: BACK DISORDER
     Dosage: 200 MG, 1X/DAY
     Route: 048
     Dates: start: 20110410
  4. CELEBREX [Suspect]
     Indication: ANTIINFLAMMATORY THERAPY

REACTIONS (4)
  - DYSPNOEA [None]
  - PHARYNGEAL OEDEMA [None]
  - LYMPHADENOPATHY [None]
  - ERYTHEMA [None]
